FAERS Safety Report 4464746-1 (Version None)
Quarter: 2004Q4

REPORT INFORMATION
  Report Type: 
  Country: None (occurrence: None)
  Receive Date: 20041004
  Receipt Date: 20040712
  Transmission Date: 20050328
  Serious: Yes (Other)
  Sender: FDA-Public Use
  Company Number: 374309

PATIENT
  Age: 46 Year
  Sex: Male
  Weight: 114.5 kg

DRUGS (15)
  1. COREG [Suspect]
     Dosage: 12.5MG TWICE PER DAY
     Route: 048
  2. AVANDIA [Concomitant]
     Route: 048
  3. COUMADIN [Concomitant]
     Dosage: 20MG PER DAY
     Route: 048
  4. DIGOXIN [Concomitant]
     Route: 048
  5. ENALAPRIL MALEATE [Concomitant]
     Dosage: 10MG PER DAY
     Route: 048
  6. SPIRONOLACTONE [Concomitant]
     Route: 048
  7. FUROSEMIDE [Concomitant]
     Route: 048
  8. ASPIRIN [Concomitant]
     Dosage: 81MG PER DAY
     Route: 048
  9. VITAMIN E [Concomitant]
     Route: 048
  10. NITROGLYCERIN [Concomitant]
     Indication: CORONARY ARTERY DISEASE
     Route: 060
  11. NORVASC [Concomitant]
     Indication: CORONARY ARTERY DISEASE
     Route: 048
  12. ACIPHEX [Concomitant]
     Route: 048
  13. AMARYL [Concomitant]
     Route: 048
  14. LIPITOR [Concomitant]
     Route: 048
  15. FISH OIL [Concomitant]
     Route: 048

REACTIONS (4)
  - DIZZINESS [None]
  - FATIGUE [None]
  - LOSS OF CONSCIOUSNESS [None]
  - TINNITUS [None]
